FAERS Safety Report 10064959 (Version 3)
Quarter: 2014Q2

REPORT INFORMATION
  Report Type: Spontaneous
  Country: AU (occurrence: AU)
  Receive Date: 20140408
  Receipt Date: 20140430
  Transmission Date: 20141212
  Serious: Yes (Other)
  Sender: FDA-Public Use
  Company Number: AU-ASTRAZENECA-2014SE18794

PATIENT
  Age: 13976 Day
  Sex: Female
  Weight: 55 kg

DRUGS (2)
  1. SEROQUEL XR [Suspect]
     Indication: DEPRESSION
     Route: 048
     Dates: start: 20130909
  2. PRISTIQ [Suspect]
     Dosage: 150, DAILY
     Route: 048
     Dates: start: 20130909

REACTIONS (1)
  - Disturbance in sexual arousal [Not Recovered/Not Resolved]
